FAERS Safety Report 6163865-1 (Version None)
Quarter: 2009Q2

REPORT INFORMATION
  Report Type: 
  Country: None (occurrence: None)
  Receive Date: 20090422
  Receipt Date: 20090421
  Transmission Date: 20091009
  Serious: Yes (Other)
  Sender: FDA-Public Use
  Company Number: US-BRISTOL-MYERS SQUIBB COMPANY-14587240

PATIENT
  Age: 45 Year
  Sex: Male

DRUGS (8)
  1. ERBITUX [Suspect]
     Indication: COLON CANCER
     Dosage: 500MG
     Route: 042
     Dates: start: 20081015
  2. DEXAMETHASONE 4MG TAB [Concomitant]
  3. ATROPINE [Concomitant]
  4. DIPHENHYDRAMINE HCL [Concomitant]
  5. IRINOTECAN HCL [Concomitant]
  6. FLUOROURACIL [Concomitant]
  7. FLUOROURACIL [Concomitant]
  8. ONDANSETRON [Concomitant]

REACTIONS (1)
  - ULCERATIVE KERATITIS [None]
